FAERS Safety Report 6805337-4 (Version None)
Quarter: 2010Q2

REPORT INFORMATION
  Report Type: 
  Country: None (occurrence: None)
  Receive Date: 20100628
  Receipt Date: 20071105
  Transmission Date: 20101027
  Serious: No
  Sender: FDA-Public Use
  Company Number: US-PFIZER INC-2007094247

PATIENT

DRUGS (1)
  1. GEODON [Suspect]
     Dates: start: 20070701

REACTIONS (3)
  - HYPERPHAGIA [None]
  - OBSESSIVE THOUGHTS [None]
  - WEIGHT INCREASED [None]
